FAERS Safety Report 14705733 (Version 2)
Quarter: 2018Q2

REPORT INFORMATION
  Report Type: Spontaneous
  Country: JP (occurrence: JP)
  Receive Date: 20180402
  Receipt Date: 20180403
  Transmission Date: 20180711
  Serious: Yes (Other)
  Sender: FDA-Public Use
  Company Number: JP-BAYER-2018-057219

PATIENT
  Age: 31 Year
  Sex: Female

DRUGS (2)
  1. BAYASPIRIN 100 MG [Suspect]
     Active Substance: ASPIRIN
     Route: 048
  2. INTERFERON [Concomitant]
     Active Substance: INTERFERON

REACTIONS (4)
  - Preterm premature rupture of membranes [None]
  - Caesarean section [None]
  - Exposure during pregnancy [None]
  - Premature labour [None]
